FAERS Safety Report 9698277 (Version 1)
Quarter: 2013Q4

REPORT INFORMATION
  Report Type: Spontaneous
  Country: TR (occurrence: TR)
  Receive Date: 20131120
  Receipt Date: 20131120
  Transmission Date: 20140711
  Serious: Yes (Hospitalization)
  Sender: FDA-Public Use
  Company Number: TR-GLAXOSMITHKLINE-B0943236A

PATIENT
  Age: 63 Year
  Sex: Male

DRUGS (1)
  1. NIQUITIN 2MG [Suspect]
     Indication: EX-TOBACCO USER
     Dosage: 1LOZ TWICE PER DAY
     Route: 065
     Dates: start: 20131105, end: 20131105

REACTIONS (4)
  - Nausea [Recovered/Resolved]
  - Diarrhoea [Recovered/Resolved]
  - Hyperhidrosis [Recovered/Resolved]
  - Toxicity to various agents [Recovered/Resolved]
